FAERS Safety Report 23415333 (Version 1)
Quarter: 2024Q1

REPORT INFORMATION
  Report Type: Spontaneous
  Country: GB (occurrence: GB)
  Receive Date: 20240118
  Receipt Date: 20240118
  Transmission Date: 20240409
  Serious: Yes (Other)
  Sender: FDA-Public Use
  Company Number: None

PATIENT
  Age: 79 Year
  Sex: Male
  Weight: 86 kg

DRUGS (9)
  1. FINASTERIDE [Suspect]
     Active Substance: FINASTERIDE
     Indication: Product used for unknown indication
     Dosage: UNK, QD (ONE TO BE TAKEN EACH DAY)
     Route: 065
     Dates: start: 20190712, end: 20231215
  2. FINASTERIDE [Suspect]
     Active Substance: FINASTERIDE
     Dosage: UNK (RESTARTED DOSE)
     Route: 065
  3. AMLODIPINE [Concomitant]
     Active Substance: AMLODIPINE BESYLATE
     Indication: Product used for unknown indication
     Dosage: UNK, OD (5 OD)
     Route: 065
     Dates: start: 20060126
  4. ATORVASTATIN [Concomitant]
     Active Substance: ATORVASTATIN
     Indication: Product used for unknown indication
     Dosage: 28 MILLIGRAM, (20)
     Route: 065
     Dates: start: 20150513
  5. NAPROXEN [Concomitant]
     Active Substance: NAPROXEN
     Indication: Product used for unknown indication
     Dosage: 56 MILLIGRAM, (250)
     Route: 065
     Dates: start: 20140214
  6. SILDENAFIL [Concomitant]
     Active Substance: SILDENAFIL
     Indication: Product used for unknown indication
     Dosage: 4 MILLIGRAM (100)
     Route: 065
     Dates: start: 20041029
  7. TAMSULOSIN [Concomitant]
     Active Substance: TAMSULOSIN
     Indication: Adverse drug reaction
     Dosage: UNK, QD (TAKE ONE DAILY)
     Route: 065
     Dates: start: 20231215
  8. OMEPRAZOLE [Concomitant]
     Active Substance: OMEPRAZOLE
     Indication: Product used for unknown indication
     Dosage: UNK (20)
     Route: 065
     Dates: start: 20110107
  9. RAMIPRIL [Concomitant]
     Active Substance: RAMIPRIL
     Indication: Product used for unknown indication
     Dosage: 28 MILLIGRAM (10)
     Route: 065
     Dates: start: 20070328

REACTIONS (1)
  - Thrombocytopenia [Recovered/Resolved]

NARRATIVE: CASE EVENT DATE: 20210719
